FAERS Safety Report 25411980 (Version 1)
Quarter: 2025Q2

REPORT INFORMATION
  Report Type: Report from Study
  Country: US (occurrence: US)
  Receive Date: 20250609
  Receipt Date: 20250609
  Transmission Date: 20250716
  Serious: No
  Sender: ACADIA PHARMACEUTICALS
  Company Number: US-ACADIA PHARMACEUTICALS INC.-ACA-2025-TRF-006639

PATIENT
  Sex: Female

DRUGS (1)
  1. DAYBUE [Suspect]
     Active Substance: TROFINETIDE
     Indication: Rett syndrome
     Dosage: 30 MILLILITER, QD
     Route: 048

REACTIONS (3)
  - Viral infection [Not Recovered/Not Resolved]
  - Urticaria [Not Recovered/Not Resolved]
  - Product dose omission issue [Not Recovered/Not Resolved]
